FAERS Safety Report 17920933 (Version 11)
Quarter: 2024Q3

REPORT INFORMATION
  Report Type: Report from Study
  Country: US (occurrence: US)
  Receive Date: 20200622
  Receipt Date: 20240712
  Transmission Date: 20241017
  Serious: Yes (Other)
  Sender: ACADIA PHARMACEUTICALS
  Company Number: US-ACADIA PHARMACEUTICALS INC.-ACA-2020-PIM-001752

PATIENT
  Sex: Female

DRUGS (33)
  1. NUPLAZID [Suspect]
     Active Substance: PIMAVANSERIN TARTRATE
     Indication: Parkinson^s disease psychosis
     Dosage: 34 MILLIGRAM, QD
     Route: 048
     Dates: start: 202004
  2. NUPLAZID [Suspect]
     Active Substance: PIMAVANSERIN TARTRATE
     Indication: Hallucination
     Dosage: 34 MILLIGRAM, QD
     Route: 048
  3. NUPLAZID [Suspect]
     Active Substance: PIMAVANSERIN TARTRATE
     Indication: Delusion
  4. NUPLAZID [Suspect]
     Active Substance: PIMAVANSERIN TARTRATE
     Indication: Parkinson^s disease
  5. NUPLAZID [Suspect]
     Active Substance: PIMAVANSERIN TARTRATE
     Indication: Parkinson^s disease psychosis
     Dosage: UNK DOSE, FREQUENCY
     Route: 065
  6. REMERON [Suspect]
     Active Substance: MIRTAZAPINE
  7. DUOPA [Concomitant]
     Active Substance: CARBIDOPA\LEVODOPA
  8. AMOXICILLIN [Concomitant]
     Active Substance: AMOXICILLIN
  9. ARIPIPRAZOLE [Concomitant]
     Active Substance: ARIPIPRAZOLE
  10. ASPIRIN [Concomitant]
     Active Substance: ASPIRIN
  11. CARBIDOPA\LEVODOPA [Concomitant]
     Active Substance: CARBIDOPA\LEVODOPA
  12. DOFETILIDE [Concomitant]
     Active Substance: DOFETILIDE
  13. ELIQUIS [Concomitant]
     Active Substance: APIXABAN
  14. ESTRADIOL [Concomitant]
     Active Substance: ESTRADIOL
  15. GABAPENTIN [Concomitant]
     Active Substance: GABAPENTIN
  16. METOPROLOL SUCCINATE [Concomitant]
     Active Substance: METOPROLOL SUCCINATE
  17. METOPROLOL TARTRATE [Concomitant]
     Active Substance: METOPROLOL TARTRATE
  18. MIRALAX [Concomitant]
     Active Substance: POLYETHYLENE GLYCOL 3350
  19. MIRTAZAPINE [Concomitant]
     Active Substance: MIRTAZAPINE
  20. VITAMINS NOS [Concomitant]
     Active Substance: VITAMINS
  21. OXYCODONE [Concomitant]
     Active Substance: OXYCODONE
  22. RIVASTIGMINE [Concomitant]
     Active Substance: RIVASTIGMINE
  23. RYTARY [Concomitant]
     Active Substance: CARBIDOPA\LEVODOPA
  24. TIKOSYN [Concomitant]
     Active Substance: DOFETILIDE
  25. VITAMIN D3 [Concomitant]
     Active Substance: CHOLECALCIFEROL
  26. XADAGO [Concomitant]
     Active Substance: SAFINAMIDE MESYLATE
  27. PROLIA [Concomitant]
     Active Substance: DENOSUMAB
  28. PREDNISONE [Concomitant]
     Active Substance: PREDNISONE
     Indication: Bronchitis
  29. PREDNISONE [Concomitant]
     Active Substance: PREDNISONE
     Indication: Productive cough
  30. METOPROLOL [Concomitant]
     Active Substance: METOPROLOL
  31. CARBIDOPA [Concomitant]
     Active Substance: CARBIDOPA
  32. PFIZER-BIONTECH COVID-19 VACCINE [Concomitant]
     Active Substance: TOZINAMERAN
  33. CARBIDOPA\ENTACAPONE\LEVODOPA [Concomitant]
     Active Substance: CARBIDOPA\ENTACAPONE\LEVODOPA

REACTIONS (14)
  - Electrocardiogram QT prolonged [Unknown]
  - Ill-defined disorder [Not Recovered/Not Resolved]
  - Personality change [Not Recovered/Not Resolved]
  - Bronchitis [Not Recovered/Not Resolved]
  - Productive cough [Not Recovered/Not Resolved]
  - Dyspepsia [Not Recovered/Not Resolved]
  - Dyspepsia [Unknown]
  - Gastrooesophageal reflux disease [Unknown]
  - Medical device change [Recovered/Resolved]
  - Stoma site hypergranulation [Unknown]
  - COVID-19 [Unknown]
  - Surgery [Unknown]
  - Complication associated with device [Unknown]
  - Ulcer [Unknown]

NARRATIVE: CASE EVENT DATE: 20200101
